FAERS Safety Report 7210452-X (Version None)
Quarter: 2010Q4

REPORT INFORMATION
  Report Type: 
  Country: None (occurrence: None)
  Receive Date: 20101227
  Receipt Date: 20101208
  Transmission Date: 20110411
  Serious: Yes (Disabling)
  Sender: FDA-Public Use
  Company Number: CTI_01273_2010

PATIENT
  Sex: Male
  Weight: 8 kg

DRUGS (8)
  1. MEIACT MS (CEFDITOREN PIVOXIL) [Suspect]
     Indication: INFECTION
     Dosage: (75 MG ORAL) ; (ORAL)
     Route: 048
     Dates: start: 20101115, end: 20101117
  2. MEIACT MS (CEFDITOREN PIVOXIL) [Suspect]
     Indication: PRODUCT USED FOR UNKNOWN INDICATION
     Dosage: (75 MG ORAL) ; (ORAL)
     Route: 048
     Dates: start: 20101115, end: 20101117
  3. MEIACT MS (CEFDITOREN PIVOXIL) [Suspect]
     Indication: INFECTION
     Dosage: (75 MG ORAL) ; (ORAL)
     Route: 048
     Dates: start: 20101120, end: 20101120
  4. MEIACT MS (CEFDITOREN PIVOXIL) [Suspect]
     Indication: PRODUCT USED FOR UNKNOWN INDICATION
     Dosage: (75 MG ORAL) ; (ORAL)
     Route: 048
     Dates: start: 20101120, end: 20101120
  5. SAWACILLIN (AMOXICILLIN HYDRATE) [Concomitant]
  6. BIOFERMIN R (TOLERANT LACTIC ACID BACTERIA) [Concomitant]
  7. ASVERIN (TIPEPIDINE HIBENZATE) [Concomitant]
  8. C-CYSTEN (L-CARBOCISTEINE) [Concomitant]

REACTIONS (6)
  - COUGH [None]
  - PIGMENTATION DISORDER [None]
  - PNEUMONIA RESPIRATORY SYNCYTIAL VIRAL [None]
  - PYREXIA [None]
  - RASH [None]
  - RHINORRHOEA [None]
